FAERS Safety Report 11091303 (Version 1)
Quarter: 2015Q2

REPORT INFORMATION
  Report Type: Spontaneous
  Country: GB (occurrence: GB)
  Receive Date: 20150505
  Receipt Date: 20150505
  Transmission Date: 20150821
  Serious: Yes (Hospitalization, Other)
  Sender: FDA-Public Use
  Company Number: GB-GLAXOSMITHKLINE-GB2015057933

PATIENT
  Age: 60 Year
  Sex: Male
  Weight: 96 kg

DRUGS (14)
  1. FERROUS FUMARATE [Concomitant]
     Active Substance: FERROUS FUMARATE
  2. PROCYCLIDINE [Concomitant]
     Active Substance: PROCYCLIDINE
  3. DARBEPOETIN ALFA [Concomitant]
     Active Substance: DARBEPOETIN ALFA
  4. MIRTAZAPINE. [Concomitant]
     Active Substance: MIRTAZAPINE
  5. ORLISTAT [Suspect]
     Active Substance: ORLISTAT
     Indication: WEIGHT DECREASED
     Dosage: AT MEALS
     Route: 048
     Dates: start: 20150304, end: 20150416
  6. ASPIRIN. [Concomitant]
     Active Substance: ASPIRIN
  7. HYDRALAZINE [Concomitant]
     Active Substance: HYDRALAZINE HYDROCHLORIDE
  8. ISOSORBIDE [Concomitant]
     Active Substance: ISOSORBIDE
  9. OMEPRAZOLE. [Concomitant]
     Active Substance: OMEPRAZOLE
  10. ATORVASTATIN [Concomitant]
     Active Substance: ATORVASTATIN
  11. BISOPROLOL [Concomitant]
     Active Substance: BISOPROLOL
  12. SITAGLIPTIN [Concomitant]
     Active Substance: SITAGLIPTIN
  13. GLICLAZIDE [Concomitant]
     Active Substance: GLICLAZIDE
  14. AMISULPRIDE [Concomitant]
     Active Substance: AMISULPRIDE

REACTIONS (2)
  - Oxalosis [Recovering/Resolving]
  - Acute kidney injury [Recovering/Resolving]

NARRATIVE: CASE EVENT DATE: 20150402
